FAERS Safety Report 19007018 (Version 1)
Quarter: 2021Q1

REPORT INFORMATION
  Report Type: Spontaneous
  Country: US (occurrence: US)
  Receive Date: 20210313
  Receipt Date: 20210313
  Transmission Date: 20210420
  Serious: Yes (Disabling)
  Sender: FDA-Public Use
  Company Number: None

PATIENT
  Age: 51 Year
  Sex: Male
  Weight: 164.25 kg

DRUGS (17)
  1. VITAMIN B6 HIGH DOSE [Concomitant]
  2. 81 MG ASPIRIN [Concomitant]
     Active Substance: ASPIRIN
  3. REXULTI [Suspect]
     Active Substance: BREXPIPRAZOLE
     Indication: MAJOR DEPRESSION
     Dosage: ?          QUANTITY:1 CAPSULE(S);?
     Route: 048
  4. PERCOCET [Concomitant]
     Active Substance: ACETAMINOPHEN\OXYCODONE HYDROCHLORIDE
  5. NIFEDIPINE. [Concomitant]
     Active Substance: NIFEDIPINE
  6. HYDROCHLOROTHIAZIDE. [Concomitant]
     Active Substance: HYDROCHLOROTHIAZIDE
  7. BARIATRIC MULTI VITAMIN [Concomitant]
  8. TRINTELLIX [Concomitant]
     Active Substance: VORTIOXETINE HYDROBROMIDE
  9. ALLOPURINOL. [Concomitant]
     Active Substance: ALLOPURINOL
  10. TRAZODONE [Concomitant]
     Active Substance: TRAZODONE HYDROCHLORIDE
  11. ALBUTEROL. [Concomitant]
     Active Substance: ALBUTEROL
  12. OLMERSARTAN MEDOXIMIL [Concomitant]
  13. OMEPRAZOLE DR [Concomitant]
     Active Substance: OMEPRAZOLE
  14. INGREZZA [Concomitant]
     Active Substance: VALBENAZINE
  15. CLONAZEPAM. [Concomitant]
     Active Substance: CLONAZEPAM
  16. ROSUVASTATIN CALCIUM. [Concomitant]
     Active Substance: ROSUVASTATIN CALCIUM
  17. VITAMIN E HIGH DOSE [Concomitant]

REACTIONS (7)
  - Gambling [None]
  - Compulsive shopping [None]
  - Obsessive-compulsive disorder [None]
  - Tardive dyskinesia [None]
  - Dependence [None]
  - Alcohol use [None]
  - Respiratory dyskinesia [None]

NARRATIVE: CASE EVENT DATE: 20200101
